FAERS Safety Report 11742172 (Version 1)
Quarter: 2015Q4

REPORT INFORMATION
  Report Type: Spontaneous
  Country: US (occurrence: US)
  Receive Date: 20151116
  Receipt Date: 20151116
  Transmission Date: 20160304
  Serious: No
  Sender: FDA-Public Use
  Company Number: US-ACTELION PHARMACEUTICALS US, INC.-A-NJ2012-59349

PATIENT
  Age: 78 Year
  Sex: Female

DRUGS (4)
  1. TRACLEER [Suspect]
     Active Substance: BOSENTAN
     Dosage: UNK
     Route: 048
  2. COUMADIN [Concomitant]
     Active Substance: WARFARIN SODIUM
  3. TRACLEER [Suspect]
     Active Substance: BOSENTAN
     Indication: PULMONARY ARTERIAL HYPERTENSION
     Dosage: UNK
     Route: 048
  4. LANOXIN [Concomitant]
     Active Substance: DIGOXIN

REACTIONS (12)
  - Rhinorrhoea [Unknown]
  - Dizziness [Unknown]
  - Throat irritation [Unknown]
  - Sneezing [Unknown]
  - Seasonal allergy [Unknown]
  - Concomitant disease aggravated [Unknown]
  - Nasal congestion [Unknown]
  - Dizziness [Unknown]
  - Dizziness postural [Unknown]
  - Cough [Unknown]
  - Lacrimation increased [Unknown]
  - Fatigue [Unknown]

NARRATIVE: CASE EVENT DATE: 2012
